FAERS Safety Report 9970976 (Version 1)
Quarter: 2014Q1

REPORT INFORMATION
  Report Type: Report from Study
  Country: US (occurrence: US)
  Receive Date: 20140306
  Receipt Date: 20140306
  Transmission Date: 20141002
  Serious: No
  Sender: FDA-Public Use
  Company Number: US-ABBVIE-13P-163-1152183-00

PATIENT
  Age: 55 Year
  Sex: Female

DRUGS (5)
  1. HUMIRA [Suspect]
     Indication: CROHN^S DISEASE
     Dates: start: 20130826
  2. HUMIRA [Suspect]
     Dates: start: 20130909
  3. LIALDA [Concomitant]
     Indication: CROHN^S DISEASE
  4. BUDESONIDE [Concomitant]
     Indication: CROHN^S DISEASE
  5. DICYCLOMINE [Concomitant]
     Indication: CROHN^S DISEASE

REACTIONS (2)
  - Medication error [Recovered/Resolved]
  - Inappropriate schedule of drug administration [Recovered/Resolved]
